FAERS Safety Report 7558847-9 (Version None)
Quarter: 2011Q2

REPORT INFORMATION
  Report Type: 
  Country: None (occurrence: None)
  Receive Date: 20110613
  Receipt Date: 20110530
  Transmission Date: 20111010
  Serious: Yes (Other)
  Sender: FDA-Public Use
  Company Number: DE-1186462

PATIENT
  Sex: Male

DRUGS (1)
  1. AZOPT [Suspect]
     Dosage: BID OPHTHALMIC
     Route: 047

REACTIONS (3)
  - ARRHYTHMIA [None]
  - DYSPNOEA [None]
  - PALPITATIONS [None]
